FAERS Safety Report 4850708-9 (Version None)
Quarter: 2005Q4

REPORT INFORMATION
  Report Type: 
  Country: None (occurrence: None)
  Receive Date: 20051212
  Receipt Date: 20051207
  Transmission Date: 20060501
  Serious: Yes (Hospitalization)
  Sender: FDA-Public Use
  Company Number: 2005SE07052

PATIENT
  Age: 20571 Day
  Sex: Male
  Weight: 63 kg

DRUGS (11)
  1. BLOPRESS [Suspect]
     Indication: HYPERTENSION
     Route: 048
     Dates: start: 20030320
  2. BLOPRESS [Suspect]
     Route: 048
     Dates: end: 20051107
  3. NORVASC [Concomitant]
     Indication: HYPERTENSION
     Route: 048
  4. LIPITOL [Concomitant]
     Route: 048
  5. MAGNESIUM OXIDE [Concomitant]
     Route: 048
  6. ADONA [Concomitant]
     Route: 065
  7. GASTER D [Concomitant]
     Route: 048
  8. MELBIN [Concomitant]
     Indication: DIABETES MELLITUS NON-INSULIN-DEPENDENT
     Route: 048
  9. STARSIS [Concomitant]
     Indication: DIABETES MELLITUS NON-INSULIN-DEPENDENT
     Route: 048
  10. ROHYPNOL [Concomitant]
     Route: 065
  11. DIURETICS [Concomitant]
     Indication: HYPERTENSION
     Route: 065

REACTIONS (5)
  - ANAEMIA [None]
  - MELAENA [None]
  - PYREXIA [None]
  - SMALL INTESTINAL HAEMORRHAGE [None]
  - SUBACUTE ENDOCARDITIS [None]
